FAERS Safety Report 7512483-9 (Version None)
Quarter: 2011Q2

REPORT INFORMATION
  Report Type: 
  Country: None (occurrence: None)
  Receive Date: 20110525
  Receipt Date: 20110525
  Transmission Date: 20111010
  Serious: Yes (Other)
  Sender: FDA-Public Use
  Company Number: None

PATIENT
  Age: 41 Year
  Sex: Female

DRUGS (2)
  1. TEMODAR [Suspect]
     Dosage: 180MG 2 QD PO
     Route: 048
     Dates: start: 20110301
  2. XELODA [Suspect]
     Indication: NEUROENDOCRINE CARCINOMA
     Dosage: 1300MG Q 12 HRS PO
     Route: 048
     Dates: start: 20110301

REACTIONS (2)
  - WHITE BLOOD CELL COUNT DECREASED [None]
  - SKIN DISCOLOURATION [None]
